FAERS Safety Report 9144178 (Version 6)
Quarter: 2013Q4

REPORT INFORMATION
  Report Type: Report from Study
  Country: US (occurrence: US)
  Receive Date: 20130306
  Receipt Date: 20131002
  Transmission Date: 20140711
  Serious: Yes (Hospitalization)
  Sender: FDA-Public Use
  Company Number: US-ALEXION-A201300361

PATIENT
  Age: 19 Year
  Sex: Male
  Weight: 61 kg

DRUGS (10)
  1. ECULIZUMAB [Suspect]
     Indication: HAEMOLYTIC URAEMIC SYNDROME
     Dosage: 1200 MG, Q2W
     Route: 042
     Dates: start: 20091030
  2. ENALAPRIL [Concomitant]
     Indication: HYPERTENSION
     Dosage: 10 MG, QD
     Route: 048
     Dates: start: 20091020
  3. FERRALET [Concomitant]
     Dosage: 90 MG, QD
  4. MAGNESIUM OXIDE [Concomitant]
     Dosage: Q400 MG, QD
  5. MYFORTIC [Concomitant]
     Indication: PROPHYLAXIS
     Dosage: 360 MG, BID
     Route: 048
     Dates: start: 20100302
  6. NIFEDIPINE [Concomitant]
     Indication: HYPERTENSION
     Dosage: 10 MG, PRN
  7. VEETIDS [Concomitant]
     Indication: PROPHYLAXIS
     Dosage: 250 MG, BID
     Route: 048
     Dates: start: 20100215
  8. PREDNISONE [Concomitant]
     Indication: PROPHYLAXIS
     Dosage: 5 MG, QD
     Route: 048
     Dates: start: 20100119
  9. PROGRAF [Concomitant]
     Indication: PROPHYLAXIS
     Dosage: 2.5 MG, BID
     Route: 048
     Dates: start: 20100303
  10. BACTRIM [Concomitant]
     Indication: PROPHYLAXIS
     Dosage: UNK
     Route: 048
     Dates: start: 20100202

REACTIONS (1)
  - Meningococcal infection [Recovered/Resolved]
